FAERS Safety Report 7803800-0 (Version None)
Quarter: 2011Q4

REPORT INFORMATION
  Report Type: 
  Country: None (occurrence: None)
  Receive Date: 20111010
  Receipt Date: 20111003
  Transmission Date: 20120403
  Serious: Yes (Other)
  Sender: FDA-Public Use
  Company Number: VE-ELI_LILLY_AND_COMPANY-VE201109007025

PATIENT
  Age: 65 Year
  Sex: Female

DRUGS (1)
  1. BYETTA [Suspect]
     Indication: DIABETES MELLITUS
     Dosage: 5 UG, QD
     Dates: start: 20110701, end: 20110801

REACTIONS (7)
  - NAUSEA [None]
  - WEIGHT DECREASED [None]
  - PARATHYROID TUMOUR BENIGN [None]
  - DIZZINESS [None]
  - SKIN DISORDER [None]
  - VISUAL IMPAIRMENT [None]
  - HYPERGLYCAEMIA [None]
